FAERS Safety Report 8287482-2 (Version None)
Quarter: 2012Q2

REPORT INFORMATION
  Report Type: 
  Country: None (occurrence: None)
  Receive Date: 20120410
  Receipt Date: 20120410
  Transmission Date: 20120825
  Serious: No
  Sender: FDA-Public Use
  Company Number: None

PATIENT
  Sex: Female
  Weight: 83.9154 kg

DRUGS (4)
  1. FUSILEV [Suspect]
     Indication: COLON CANCER
     Dosage: 355MG Q 2WKS IV
     Route: 042
     Dates: start: 20120201
  2. FOLFIRI + AVASTIN [Concomitant]
  3. IRINOTECAN + BEVACIZUMAB (AVASTIN) [Concomitant]
  4. FLUOROURACIL [Concomitant]

REACTIONS (3)
  - VOMITING [None]
  - INFUSION RELATED REACTION [None]
  - NAUSEA [None]
